FAERS Safety Report 6947370-8 (Version None)
Quarter: 2010Q3

REPORT INFORMATION
  Report Type: 
  Country: None (occurrence: None)
  Receive Date: 20100827
  Receipt Date: 20100819
  Transmission Date: 20110219
  Serious: Yes (Other)
  Sender: FDA-Public Use
  Company Number: US-AMGEN-KDL325279

PATIENT
  Sex: Female
  Weight: 72.6 kg

DRUGS (13)
  1. ENBREL [Suspect]
     Indication: RHEUMATOID ARTHRITIS
     Route: 058
     Dates: start: 20070808, end: 20090401
  2. FOLIC ACID [Concomitant]
  3. ZOFRAN [Concomitant]
  4. PRENATAL VITAMINS [Concomitant]
  5. PLAQUENIL [Concomitant]
     Dates: end: 20080616
  6. PREDNISONE [Concomitant]
  7. IRON [Concomitant]
  8. DARVOCET-N 100 [Concomitant]
  9. DIFLUCAN [Concomitant]
  10. TERCONAZOLE [Concomitant]
  11. ZITHROMAX [Concomitant]
  12. HUMIRA [Concomitant]
     Dates: start: 20090301
  13. METHOTREXATE [Concomitant]
     Dates: start: 20100301

REACTIONS (3)
  - APPENDICITIS [None]
  - AUTOIMMUNE THYROIDITIS [None]
  - RHEUMATOID ARTHRITIS [None]
